FAERS Safety Report 13768434 (Version 1)
Quarter: 2017Q3

REPORT INFORMATION
  Report Type: Spontaneous
  Country: US (occurrence: US)
  Receive Date: 20170719
  Receipt Date: 20170719
  Transmission Date: 20171127
  Serious: No
  Sender: FDA-Public Use
  Company Number: None

PATIENT
  Age: 57 Year
  Sex: Female
  Weight: 139.5 kg

DRUGS (5)
  1. ZOLPIDEM GENERIC FOR AMBIEN [Suspect]
     Active Substance: ZOLPIDEM TARTRATE
     Indication: INSOMNIA
     Dosage: ?          OTHER STRENGTH:MG;QUANTITY:15 TABLET(S);?
     Route: 048
  2. TENUATE [Concomitant]
     Active Substance: DIETHYLPROPION HYDROCHLORIDE
  3. WELLBUTRION [Concomitant]
  4. AMBIEN [Concomitant]
     Active Substance: ZOLPIDEM TARTRATE
  5. CELEXA [Concomitant]
     Active Substance: CITALOPRAM HYDROBROMIDE

REACTIONS (5)
  - Product substitution issue [None]
  - Insomnia [None]
  - Product quality issue [None]
  - Drug ineffective [None]
  - Condition aggravated [None]

NARRATIVE: CASE EVENT DATE: 20170606
